FAERS Safety Report 6789350-1 (Version None)
Quarter: 2010Q2

REPORT INFORMATION
  Report Type: 
  Country: None (occurrence: None)
  Receive Date: 20100623
  Receipt Date: 20090605
  Transmission Date: 20101027
  Serious: No
  Sender: FDA-Public Use
  Company Number: US-PFIZER INC-2008030072

PATIENT
  Sex: Male
  Weight: 82.086 kg

DRUGS (2)
  1. SUTENT [Suspect]
  2. HYZAAR [Suspect]

REACTIONS (2)
  - FACE OEDEMA [None]
  - SKIN DISCOLOURATION [None]
